FAERS Safety Report 13485451 (Version 4)
Quarter: 2017Q3

REPORT INFORMATION
  Report Type: Report from Study
  Country: US (occurrence: US)
  Receive Date: 20170426
  Receipt Date: 20170731
  Transmission Date: 20171127
  Serious: Yes (Hospitalization, Other)
  Sender: FDA-Public Use
  Company Number: US-PFIZER INC-2017176965

PATIENT
  Age: 73 Year
  Sex: Female

DRUGS (1)
  1. IBRANCE [Suspect]
     Active Substance: PALBOCICLIB
     Indication: BREAST CANCER
     Dosage: 125 MG, 1X/DAY
     Route: 048
     Dates: start: 20170405

REACTIONS (9)
  - Fall [Unknown]
  - Eye contusion [Unknown]
  - Red blood cell count decreased [Unknown]
  - Facial bones fracture [Unknown]
  - Fatigue [Unknown]
  - Pneumonia [Unknown]
  - Decreased appetite [Unknown]
  - Weight decreased [Unknown]
  - Ligament sprain [Unknown]

NARRATIVE: CASE EVENT DATE: 2017
